FAERS Safety Report 15852352 (Version 1)
Quarter: 2019Q1

REPORT INFORMATION
  Report Type: Spontaneous
  Country: US (occurrence: US)
  Receive Date: 20190122
  Receipt Date: 20190122
  Transmission Date: 20190417
  Serious: Yes (Other)
  Sender: FDA-Public Use
  Company Number: US-AMGEN INC.-USASP2019008427

PATIENT
  Age: 30 Year
  Sex: Female

DRUGS (2)
  1. XULANE [Concomitant]
     Active Substance: ETHINYL ESTRADIOL\NORELGESTROMIN
     Indication: CONTRACEPTION
     Dosage: UNK (PATCH ON PATCH A WEEK FOR 3 WEEK AND 1 WEEK OFF)
  2. AIMOVIG [Suspect]
     Active Substance: ERENUMAB-AOOE
     Indication: MIGRAINE PROPHYLAXIS
     Dosage: 140 MG, QMO
     Route: 065
     Dates: start: 20190101

REACTIONS (2)
  - Throat tightness [Recovering/Resolving]
  - Rash generalised [Recovering/Resolving]

NARRATIVE: CASE EVENT DATE: 20190111
